FAERS Safety Report 7226953-4 (Version None)
Quarter: 2011Q1

REPORT INFORMATION
  Report Type: 
  Country: None (occurrence: None)
  Receive Date: 20110105
  Receipt Date: 20101224
  Transmission Date: 20110831
  Serious: Yes (Hospitalization, Other)
  Sender: FDA-Public Use
  Company Number: 023790

PATIENT
  Sex: Female

DRUGS (4)
  1. KEPPRA [Suspect]
     Indication: EPILEPSY
     Dosage: 500 MG BID, ORAL;
     Route: 048
     Dates: start: 20101211, end: 20101214
  2. FORLAX [Concomitant]
  3. TARDYFERON [Concomitant]
  4. DAFALGAN [Concomitant]

REACTIONS (1)
  - RHABDOMYOLYSIS [None]
